FAERS Safety Report 7883608-0 (Version None)
Quarter: 2011Q4

REPORT INFORMATION
  Report Type: 
  Country: None (occurrence: None)
  Receive Date: 20111031
  Receipt Date: 20111018
  Transmission Date: 20120403
  Serious: Yes (Hospitalization)
  Sender: FDA-Public Use
  Company Number: 2011MA015507

PATIENT
  Age: 86 Year
  Sex: Female

DRUGS (6)
  1. THYRAX [Concomitant]
  2. LYRICA [Concomitant]
  3. FUROSEMIDE [Concomitant]
  4. MIRTAZAPINE [Suspect]
     Indication: DEPRESSION
     Dosage: 15 MG;QD;
     Dates: start: 20100311, end: 20110918
  5. ENALAPRIL MALEATE [Concomitant]
  6. MIRTAZAPINE [Suspect]
     Indication: DEPRESSION
     Dosage: 15 MG;QD;
     Dates: start: 20100311, end: 20110918

REACTIONS (1)
  - HYPONATRAEMIA [None]
